FAERS Safety Report 22668618 (Version 2)
Quarter: 2023Q4

REPORT INFORMATION
  Report Type: Spontaneous
  Country: US (occurrence: US)
  Receive Date: 20230704
  Receipt Date: 20231211
  Transmission Date: 20240109
  Serious: No
  Sender: FDA-Public Use
  Company Number: US-APOTEX-2023AP009111

PATIENT
  Sex: Female

DRUGS (2)
  1. KETOROLAC TROMETHAMINE [Suspect]
     Active Substance: KETOROLAC TROMETHAMINE
     Indication: Product used for unknown indication
     Dosage: 1 DOSAGE FORM, QID
     Route: 047
     Dates: start: 20230603
  2. MOXIFLOXACIN [Concomitant]
     Active Substance: MOXIFLOXACIN
     Indication: Product used for unknown indication
     Dosage: UNK
     Route: 047
     Dates: start: 20230603

REACTIONS (2)
  - Product container issue [Unknown]
  - Eye irritation [Unknown]

NARRATIVE: CASE EVENT DATE: 20230601
